FAERS Safety Report 7214742-6 (Version None)
Quarter: 2011Q1

REPORT INFORMATION
  Report Type: 
  Country: None (occurrence: None)
  Receive Date: 20110107
  Receipt Date: 20100115
  Transmission Date: 20110831
  Serious: No
  Sender: FDA-Public Use
  Company Number: A0839741A

PATIENT
  Age: 70 Year

DRUGS (7)
  1. SAW PALMETTO [Concomitant]
  2. FENOFIBRATE [Concomitant]
  3. HYDROXYZINE [Concomitant]
  4. MICARDIS [Suspect]
     Route: 048
  5. NIASPAN [Concomitant]
  6. LOVAZA [Suspect]
     Dosage: 2TAB TWICE PER DAY
     Route: 048
     Dates: start: 20090101
  7. ASPIRIN [Concomitant]

REACTIONS (4)
  - SCRATCH [None]
  - RASH GENERALISED [None]
  - URTICARIA [None]
  - PRURITUS GENERALISED [None]
